FAERS Safety Report 23362234 (Version 1)
Quarter: 2024Q1

REPORT INFORMATION
  Report Type: Report from Study
  Country: US (occurrence: US)
  Receive Date: 20240103
  Receipt Date: 20240103
  Transmission Date: 20240410
  Serious: No
  Sender: FDA-Public Use
  Company Number: US-ALXN-A202208500

PATIENT
  Sex: Female

DRUGS (1)
  1. STRENSIQ [Suspect]
     Active Substance: ASFOTASE ALFA
     Indication: Product used for unknown indication
     Dosage: UNK
     Route: 058

REACTIONS (10)
  - Blood testosterone increased [Unknown]
  - Thyroid hormones increased [Unknown]
  - Oedema peripheral [Unknown]
  - Tinnitus [Unknown]
  - Rosacea [Unknown]
  - Injection site pain [Unknown]
  - Injection site swelling [Unknown]
  - Weight increased [Unknown]
  - Temperature intolerance [Unknown]
  - Diarrhoea [Unknown]
